FAERS Safety Report 20242795 (Version 1)
Quarter: 2021Q4

REPORT INFORMATION
  Report Type: Spontaneous
  Country: US (occurrence: US)
  Receive Date: 20211228
  Receipt Date: 20211228
  Transmission Date: 20220303
  Serious: No
  Sender: FDA-Public Use
  Company Number: US-COOPERSURGICAL, INC.-US-2021CPS001067

PATIENT
  Age: 30 Year
  Sex: Female
  Weight: 87.982 kg

DRUGS (2)
  1. PARAGARD T 380A [Suspect]
     Active Substance: COPPER
     Indication: Contraception
     Dosage: UNK
     Route: 015
     Dates: start: 20210407
  2. PRENATAL VITAMINS                  /08195401/ [Concomitant]
     Indication: Supplementation therapy
     Dosage: UNK
     Route: 065

REACTIONS (7)
  - Dysgeusia [Unknown]
  - Dry mouth [Unknown]
  - Dry throat [Unknown]
  - Post procedural haemorrhage [Unknown]
  - Procedural pain [Unknown]
  - Procedural headache [Unknown]
  - Suppressed lactation [Unknown]

NARRATIVE: CASE EVENT DATE: 20210407
